FAERS Safety Report 11688847 (Version 1)
Quarter: 2015Q4

REPORT INFORMATION
  Report Type: Spontaneous
  Country: GB (occurrence: GB)
  Receive Date: 20151102
  Receipt Date: 20151102
  Transmission Date: 20160304
  Serious: Yes (Other)
  Sender: FDA-Public Use
  Company Number: GB-ACCORD-034940

PATIENT
  Age: 36 Year
  Sex: Male

DRUGS (2)
  1. ENBREL [Suspect]
     Active Substance: ETANERCEPT
     Indication: RHEUMATOID ARTHRITIS
     Dosage: LAST ENBREL INJECTION PRIOR THE EVENTS ON 09-OCT-2015
     Dates: start: 20150701, end: 20151009
  2. METHOTREXATE [Suspect]
     Active Substance: METHOTREXATE
     Indication: PRODUCT USED FOR UNKNOWN INDICATION
     Dates: end: 2015

REACTIONS (14)
  - Pruritus [Unknown]
  - Peripheral swelling [Unknown]
  - Neck pain [Unknown]
  - Joint swelling [Unknown]
  - Muscular weakness [Unknown]
  - Blister [Unknown]
  - Musculoskeletal stiffness [Unknown]
  - Pain in extremity [Unknown]
  - Rash [Unknown]
  - Lower respiratory tract infection [Unknown]
  - Varicella [Unknown]
  - Musculoskeletal pain [Unknown]
  - Drug effect incomplete [Unknown]
  - Mass [Unknown]
